FAERS Safety Report 10234857 (Version 2)
Quarter: 2014Q4

REPORT INFORMATION
  Report Type: Spontaneous
  Country: US (occurrence: US)
  Receive Date: 20140613
  Receipt Date: 20141114
  Transmission Date: 20150528
  Serious: Yes (Other)
  Sender: FDA-Public Use
  Company Number: US-BAYER-2014-083167

PATIENT
  Sex: Female
  Weight: 82.86 kg

DRUGS (1)
  1. BETASERON [Suspect]
     Active Substance: INTERFERON BETA-1B
     Indication: MULTIPLE SCLEROSIS
     Dosage: UNK UNK, QD
     Dates: start: 199803, end: 200205

REACTIONS (5)
  - Diverticulitis [Not Recovered/Not Resolved]
  - Irritable bowel syndrome [Not Recovered/Not Resolved]
  - Heat illness [Unknown]
  - Sleep disorder [Unknown]
  - Inappropriate schedule of drug administration [None]
